FAERS Safety Report 21225955 (Version 1)
Quarter: 2022Q3

REPORT INFORMATION
  Report Type: Report from Study
  Country: CA (occurrence: CA)
  Receive Date: 20220818
  Receipt Date: 20220818
  Transmission Date: 20221027
  Serious: Yes (Other)
  Sender: FDA-Public Use
  Company Number: CA-SUN PHARMACEUTICAL INDUSTRIES LTD-2022R1-349088

PATIENT
  Age: 54 Year
  Sex: Male

DRUGS (2)
  1. CAPECITABINE [Suspect]
     Active Substance: CAPECITABINE
     Indication: Neoplasm malignant
     Dosage: 750 MILLIGRAM/SQ. METER, BID ON DAYS 1 TO 14, 12 CYCLES
     Route: 065
  2. TEMOZOLOMIDE [Suspect]
     Active Substance: TEMOZOLOMIDE
     Indication: Neoplasm malignant
     Dosage: 100 MILLIGRAM/SQ. METER, BID ON DAYS 10 THROUGH 14, FOLLOWED BY 2 WEEKS OFF TREATMENT, 12 CYCLES
     Route: 065

REACTIONS (1)
  - Therapy partial responder [Unknown]
